FAERS Safety Report 18956035 (Version 1)
Quarter: 2021Q1

REPORT INFORMATION
  Report Type: Spontaneous
  Country: TR (occurrence: TR)
  Receive Date: 20210301
  Receipt Date: 20210301
  Transmission Date: 20210420
  Serious: Yes (Congenital Anomaly, Other)
  Sender: FDA-Public Use
  Company Number: TR-ANIPHARMA-2021-TR-000015

PATIENT
  Sex: 0

DRUGS (1)
  1. PENICILLAMINE (NON?SPECIFIC) [Suspect]
     Active Substance: PENICILLAMINE
     Indication: PRODUCT USED FOR UNKNOWN INDICATION
     Dosage: 300 MG DAILY
     Route: 015

REACTIONS (2)
  - Pyloric stenosis [Not Recovered/Not Resolved]
  - Foetal exposure during pregnancy [Unknown]
